FAERS Safety Report 13832854 (Version 1)
Quarter: 2017Q3

REPORT INFORMATION
  Report Type: Spontaneous
  Country: US (occurrence: US)
  Receive Date: 20170803
  Receipt Date: 20170803
  Transmission Date: 20171127
  Serious: No
  Sender: FDA-Public Use
  Company Number: US-ROCHE-694196

PATIENT
  Age: 76 Year
  Sex: Female
  Weight: 59 kg

DRUGS (5)
  1. RELAFEN [Concomitant]
     Active Substance: NABUMETONE
     Route: 065
  2. BONIVA [Suspect]
     Active Substance: IBANDRONATE SODIUM
     Indication: BONE LOSS
     Dosage: INDICATION:BEGINNING OF BONE LOSS
     Route: 048
  3. ATACAND [Concomitant]
     Active Substance: CANDESARTAN CILEXETIL
     Route: 065
  4. FLEXERIL [Concomitant]
     Active Substance: CYCLOBENZAPRINE HYDROCHLORIDE
     Route: 065
  5. FISH OIL [Concomitant]
     Active Substance: FISH OIL
     Route: 065

REACTIONS (4)
  - Throat tightness [Not Recovered/Not Resolved]
  - Dysphagia [Not Recovered/Not Resolved]
  - Wrong technique in product usage process [Unknown]
  - Product quality issue [Unknown]

NARRATIVE: CASE EVENT DATE: 201002
